FAERS Safety Report 9197474 (Version 1)
Quarter: 2013Q1

REPORT INFORMATION
  Report Type: Spontaneous
  Country: US (occurrence: US)
  Receive Date: 20130328
  Receipt Date: 20130328
  Transmission Date: 20140127
  Serious: Yes (Death)
  Sender: FDA-Public Use
  Company Number: US-PFIZER INC-2013097885

PATIENT
  Age: 27 Year
  Sex: Female

DRUGS (10)
  1. CHLORAMPHENICOL [Suspect]
     Indication: PROPHYLAXIS
     Dosage: UNK
     Route: 042
  2. ERYTHROMYCIN [Concomitant]
     Dosage: 2.5 G/DAY
     Dates: start: 1975
  3. TETRACYCLINE [Concomitant]
     Dosage: UNK
     Dates: start: 1975
  4. NITROFURANTOIN [Concomitant]
     Dosage: UNK
     Dates: start: 1975
  5. GENTAMICIN [Concomitant]
     Dosage: UNK
     Dates: start: 1975
  6. DIPHENHYDRAMINE [Concomitant]
     Dosage: UNK
     Dates: start: 1975
  7. FOLIC ACID [Concomitant]
     Dosage: UNK
     Dates: start: 1975
  8. CHLORDIAZEPOXIDE [Concomitant]
     Dosage: UNK
     Dates: start: 1975
  9. OXYCODONE [Concomitant]
     Dosage: UNK
     Dates: start: 1975
  10. IRON SULFATE [Concomitant]
     Dosage: UNK
     Dates: start: 1975

REACTIONS (1)
  - Aplastic anaemia [Fatal]
